FAERS Safety Report 4604184-1 (Version None)
Quarter: 2005Q1

REPORT INFORMATION
  Report Type: 
  Country: None (occurrence: None)
  Receive Date: 20050310
  Receipt Date: 20050121
  Transmission Date: 20050727
  Serious: Yes (Other)
  Sender: FDA-Public Use
  Company Number: PHBS2005JP01360

PATIENT
  Age: 75 Year
  Sex: Male
  Weight: 74 kg

DRUGS (12)
  1. DIOVAN [Suspect]
     Indication: HYPERTENSION
     Dosage: 80 MG, QD
     Route: 048
     Dates: start: 20030818, end: 20041221
  2. DIOVAN [Suspect]
     Dosage: 120 MG, QD
     Route: 048
     Dates: start: 20041221, end: 20050124
  3. PROTECADIN [Concomitant]
     Dosage: 10 MG, UNK
     Route: 048
     Dates: start: 20050107
  4. EUGLUCON [Concomitant]
     Indication: DIABETES MELLITUS
     Dosage: 1.25 MG, UNK
     Route: 048
  5. EUGLUCON [Concomitant]
     Dosage: 2.5 MG, UNK
     Route: 048
  6. NORVASC [Concomitant]
     Dosage: 10 MG, UNK
     Route: 048
     Dates: start: 20030524, end: 20050124
  7. FLIVAS [Concomitant]
     Indication: DYSURIA
     Dosage: 25 MG, UNK
     Route: 048
     Dates: start: 20030818
  8. CARDENALIN [Concomitant]
     Indication: HYPERTENSION
     Dosage: 4 MG, UNK
     Route: 048
     Dates: start: 20040623
  9. CARDENALIN [Concomitant]
     Dosage: 2 MG, UNK
     Route: 048
  10. PERSANTIN [Concomitant]
     Dosage: 37.5 MG, UNK
     Route: 048
  11. SERMION [Concomitant]
     Dosage: 15 MG, UNK
     Route: 048
     Dates: end: 20050107
  12. NITRODERM [Concomitant]
     Indication: CARDIAC DISORDER
     Dosage: 25 MG, UNK
     Route: 062

REACTIONS (5)
  - BLOOD CREATININE INCREASED [None]
  - CEREBRAL INFARCTION [None]
  - DEPRESSED LEVEL OF CONSCIOUSNESS [None]
  - DYSARTHRIA [None]
  - HYPERKALAEMIA [None]
